FAERS Safety Report 15774922 (Version 3)
Quarter: 2019Q1

REPORT INFORMATION
  Report Type: Report from Study
  Country: AU (occurrence: AU)
  Receive Date: 20181230
  Receipt Date: 20190314
  Transmission Date: 20190417
  Serious: Yes (Death, Hospitalization)
  Sender: FDA-Public Use
  Company Number: AU-ROCHE-1742705

PATIENT
  Age: 80 Year
  Sex: Female
  Weight: 53.3 kg

DRUGS (41)
  1. BGB-3111 [Suspect]
     Active Substance: ZANUBRUTINIB
     Route: 048
     Dates: start: 20160914
  2. DEXAMETHASONE. [Concomitant]
     Active Substance: DEXAMETHASONE
     Route: 048
     Dates: start: 20160414, end: 20160417
  3. CLEXANE [Concomitant]
     Active Substance: ENOXAPARIN SODIUM
     Route: 065
     Dates: start: 20160419
  4. BGB-3111 [Suspect]
     Active Substance: ZANUBRUTINIB
     Route: 048
     Dates: start: 20160622
  5. RITUXIMAB. [Suspect]
     Active Substance: RITUXIMAB
     Indication: PRODUCT USED FOR UNKNOWN INDICATION
     Route: 065
  6. FUROSEMIDE. [Concomitant]
     Active Substance: FUROSEMIDE
     Route: 042
     Dates: start: 20160426
  7. VALACICLOVIR [Concomitant]
     Active Substance: VALACYCLOVIR HYDROCHLORIDE
     Route: 048
     Dates: start: 20160426
  8. OBINUTUZUMAB. [Suspect]
     Active Substance: OBINUTUZUMAB
     Dosage: TOTAL VOLUME WAS 250 ML AND INFUSION RATE WAS 100 MG/HR
     Route: 042
     Dates: start: 20160914
  9. BGB-3111 [Suspect]
     Active Substance: ZANUBRUTINIB
     Route: 048
     Dates: start: 20160817
  10. CALCITRIOL. [Concomitant]
     Active Substance: CALCITRIOL
  11. CALCIUM CARBONATE. [Concomitant]
     Active Substance: CALCIUM CARBONATE
     Indication: PROPHYLAXIS
     Route: 048
     Dates: start: 20160419, end: 20160705
  12. CALCIUM CARBONATE. [Concomitant]
     Active Substance: CALCIUM CARBONATE
     Route: 048
     Dates: start: 20160705
  13. CALTRATE [Concomitant]
     Active Substance: CALCIUM CARBONATE
     Indication: PROPHYLAXIS
     Route: 048
     Dates: start: 20160419, end: 20160705
  14. ONDANSETRON [Concomitant]
     Active Substance: ONDANSETRON
     Dosage: PRN
     Route: 048
     Dates: start: 20161122
  15. OBINUTUZUMAB. [Suspect]
     Active Substance: OBINUTUZUMAB
     Dosage: TOTAL VOLUME WAS 250 ML AND INFUSION RATE WAS 100 MG/HR
     Route: 042
     Dates: start: 20160524
  16. OBINUTUZUMAB. [Suspect]
     Active Substance: OBINUTUZUMAB
     Dosage: TOTAL VOLUME WAS 250 ML AND INFUSION RATE WAS 100 MG/HR
     Route: 042
     Dates: start: 20160622
  17. CALTRATE [Concomitant]
     Active Substance: CALCIUM CARBONATE
     Route: 048
     Dates: start: 20160705
  18. OBINUTUZUMAB. [Suspect]
     Active Substance: OBINUTUZUMAB
     Indication: B-CELL LYMPHOMA
     Dosage: TOTAL VOLUME WAS 100 ML AND INFUSION RATE WAS 25 MG/HR?LAST DOSE RECEIVED ON 14 SEP 2016
     Route: 042
     Dates: start: 20160426
  19. CYTARABIN [Suspect]
     Active Substance: CYTARABINE
     Indication: PRODUCT USED FOR UNKNOWN INDICATION
     Route: 042
     Dates: start: 20161208, end: 20161210
  20. FUROSEMIDE. [Concomitant]
     Active Substance: FUROSEMIDE
     Route: 042
     Dates: start: 20160413, end: 20160419
  21. METOCLOPRAMIDE. [Concomitant]
     Active Substance: METOCLOPRAMIDE
     Dosage: PRN
     Route: 048
     Dates: start: 20160426
  22. METOPROLOL. [Concomitant]
     Active Substance: METOPROLOL
     Route: 048
     Dates: start: 20160419
  23. TAZOCIN [Concomitant]
     Active Substance: PIPERACILLIN SODIUM\TAZOBACTAM SODIUM
     Route: 048
     Dates: start: 20160430
  24. PARACETAMOL [Concomitant]
     Active Substance: ACETAMINOPHEN
     Indication: PROPHYLAXIS
     Dosage: PRN, DAY 1, 2, 8, 15 OF C1 THEN EVERY 28 DAYS
     Route: 048
     Dates: start: 20160426, end: 20160914
  25. ONDANSETRON [Concomitant]
     Active Substance: ONDANSETRON
     Dosage: DAY 1, 2, 8, 15 OF C1 THEN EVERY 28 DAYS
     Route: 048
     Dates: start: 20160426, end: 20160914
  26. OBINUTUZUMAB. [Suspect]
     Active Substance: OBINUTUZUMAB
     Dosage: TOTAL VOLUME WAS 250 ML AND INFUSION RATE WAS 100 MG/HR
     Route: 042
     Dates: start: 20160503
  27. OBINUTUZUMAB. [Suspect]
     Active Substance: OBINUTUZUMAB
     Dosage: TOTAL VOLUME WAS 250 ML AND INFUSION RATE WAS 100 MG/HR
     Route: 042
     Dates: start: 20160527
  28. OBINUTUZUMAB. [Suspect]
     Active Substance: OBINUTUZUMAB
     Dosage: TOTAL VOLUME WAS 250 ML AND INFUSION RATE WAS 100 MG/HR
     Route: 042
     Dates: start: 20160817
  29. BGB-3111 [Suspect]
     Active Substance: ZANUBRUTINIB
     Route: 048
     Dates: start: 20160524
  30. BENDAMUSTINA [Suspect]
     Active Substance: BENDAMUSTINE
     Indication: PRODUCT USED FOR UNKNOWN INDICATION
     Route: 042
     Dates: start: 20161208, end: 20161209
  31. ALLOPURINOL. [Concomitant]
     Active Substance: ALLOPURINOL
     Route: 048
     Dates: start: 20160426
  32. PANTOPRAZOLE [Concomitant]
     Active Substance: PANTOPRAZOLE
     Route: 065
     Dates: start: 20160419
  33. IMMUNOGLOBULIN [Concomitant]
     Active Substance: HUMAN IMMUNOGLOBULIN G
     Indication: PROPHYLAXIS
     Route: 042
     Dates: start: 20160505, end: 20160620
  34. SULFAMETHOXAZOLE/TRIMETHOPRIM [Concomitant]
     Active Substance: SULFAMETHOXAZOLE\TRIMETHOPRIM
     Indication: PROPHYLAXIS
     Dosage: 1 TABLET
     Route: 048
     Dates: start: 20160505
  35. OBINUTUZUMAB. [Suspect]
     Active Substance: OBINUTUZUMAB
     Dosage: TOTAL VOLUME WAS 250 ML AND INFUSION RATE WAS 100 MG/HR
     Route: 042
     Dates: start: 20160720
  36. BGB-3111 [Suspect]
     Active Substance: ZANUBRUTINIB
     Indication: B-CELL LYMPHOMA
     Dosage: LAST DOSE RECEIVED ON 06 DEC 2016
     Route: 048
  37. BGB-3111 [Suspect]
     Active Substance: ZANUBRUTINIB
     Route: 048
     Dates: start: 20161012
  38. BGB-3111 [Suspect]
     Active Substance: ZANUBRUTINIB
     Route: 048
     Dates: start: 20161109
  39. OBINUTUZUMAB. [Suspect]
     Active Substance: OBINUTUZUMAB
     Dosage: TOTAL VOLUME WAS 250 ML AND INFUSION RATE WAS 50 MG/HR
     Route: 042
     Dates: start: 20160427
  40. OBINUTUZUMAB. [Suspect]
     Active Substance: OBINUTUZUMAB
     Dosage: TOTAL VOLUME WAS 250 ML AND INFUSION RATE WAS 100 MG/HR
     Route: 042
     Dates: start: 20160510
  41. BGB-3111 [Suspect]
     Active Substance: ZANUBRUTINIB
     Route: 048
     Dates: start: 20160720

REACTIONS (4)
  - Renal impairment [Fatal]
  - Tumour lysis syndrome [Recovered/Resolved with Sequelae]
  - Tumour lysis syndrome [Recovered/Resolved]
  - Pleural effusion [Recovered/Resolved]

NARRATIVE: CASE EVENT DATE: 20161215
